FAERS Safety Report 8474215-X (Version None)
Quarter: 2012Q2

REPORT INFORMATION
  Report Type: 
  Country: None (occurrence: None)
  Receive Date: 20120628
  Receipt Date: 20120621
  Transmission Date: 20120825
  Serious: Yes (Other)
  Sender: FDA-Public Use
  Company Number: US-BAYER-2011-007023

PATIENT
  Age: 52 Year
  Sex: Female
  Weight: 102.95 kg

DRUGS (29)
  1. VITAMIN B COMPLEX CAP [Concomitant]
  2. AMBIEN CR [Concomitant]
     Dosage: 12.5 MG, UNK
     Dates: start: 20070408, end: 20090318
  3. PHENERGAN HCL [Concomitant]
     Dosage: 25 MG, THREE TIMES DAILY
     Route: 048
  4. DIFLUCAN [Concomitant]
     Dosage: 150 MG, DAILY
     Route: 048
  5. TESSALON [Concomitant]
     Dosage: 200 MG, THREE TIMES DAILY
     Route: 048
  6. IMITREX [Concomitant]
     Dosage: 5 MG, UNK
     Route: 048
     Dates: start: 20070718, end: 20090402
  7. SPIRONOLACTONE [Concomitant]
     Dosage: 50 MG, UNK
     Dates: start: 20070503, end: 20090924
  8. LEXAPRO [Concomitant]
     Dosage: 20 MG, DAILY
     Route: 048
  9. YASMIN [Suspect]
     Dosage: UNK
     Dates: start: 20070101, end: 20090101
  10. BIAXIN XL [Concomitant]
     Dosage: 500 MG, DAILY
     Route: 048
  11. MIDRIN [Concomitant]
     Dosage: 325 MG, TWICE DAILY
     Route: 048
  12. RANITIDINE [Concomitant]
     Dosage: 300 MG, DAILY
     Route: 048
  13. TOPAMAX [Concomitant]
     Dosage: 100 MG, DAILY
     Route: 048
  14. TRAZODONE HCL [Concomitant]
     Dosage: 50 MG,DAILY
     Route: 048
  15. VITAMIN B12 [Concomitant]
     Dosage: 1 ML, MONTHLY
     Route: 058
  16. YAZ [Suspect]
     Dosage: UNK
     Dates: start: 20070101, end: 20090101
  17. SYNTHROID [Concomitant]
     Dosage: 0.088 MG, DAILY
     Route: 048
     Dates: start: 20070723, end: 20091003
  18. SEROQUEL [Concomitant]
     Dosage: 25 MG, UNK
     Route: 048
  19. ALLEGRA [Concomitant]
     Dosage: 180 MG, DAILY
     Route: 048
  20. FLONASE [Concomitant]
     Dosage: 0.05 MG, UNK
     Route: 045
  21. MUCINEX [Concomitant]
     Dosage: 600 MG, DAILY
     Route: 048
  22. METADATE ER [Concomitant]
     Dosage: 10 MG, UNK
     Route: 048
  23. PROTONIX [Concomitant]
     Dosage: 40 MG, TWICE DAILY
     Route: 048
  24. ZOMIG [Concomitant]
     Dosage: 5 MG, UNK
  25. VALTREX [Concomitant]
     Dosage: 500 MG, UNK
     Dates: start: 20070927, end: 20090917
  26. METADATE CD [Concomitant]
     Dosage: 20 MG, UNK
     Dates: start: 20070819, end: 20090905
  27. AZELEX [Concomitant]
     Route: 061
  28. OMNICEF [Concomitant]
     Dosage: 300 MG, DAILY
     Route: 048
  29. ZANTAC [Concomitant]
     Dosage: 300 MG, DAILY
     Route: 048

REACTIONS (5)
  - BILIARY DYSKINESIA [None]
  - GALLBLADDER NON-FUNCTIONING [None]
  - PAIN [None]
  - CHOLECYSTITIS CHRONIC [None]
  - ANXIETY [None]
